FAERS Safety Report 6600909-4 (Version None)
Quarter: 2010Q1

REPORT INFORMATION
  Report Type: 
  Country: None (occurrence: None)
  Receive Date: 20100224
  Receipt Date: 20100224
  Transmission Date: 20100710
  Serious: Yes (Life-Threatening, Hospitalization, Disabling, Other)
  Sender: FDA-Public Use
  Company Number: None

PATIENT
  Sex: Male
  Weight: 90.7194 kg

DRUGS (1)
  1. TRAMADOL HCL [Suspect]

REACTIONS (7)
  - ALOPECIA [None]
  - ANXIETY [None]
  - BLOOD GLUCOSE ABNORMAL [None]
  - BLOOD PRESSURE INADEQUATELY CONTROLLED [None]
  - ERECTILE DYSFUNCTION [None]
  - IMMUNE SYSTEM DISORDER [None]
  - INCONTINENCE [None]
